FAERS Safety Report 16025259 (Version 2)
Quarter: 2021Q2

REPORT INFORMATION
  Report Type: Spontaneous
  Country: US (occurrence: US)
  Receive Date: 20190301
  Receipt Date: 20210413
  Transmission Date: 20210716
  Serious: No
  Sender: FDA-Public Use
  Company Number: US-SA-2019SA055033

PATIENT
  Age: 90 Year
  Sex: Male

DRUGS (1)
  1. UNISOM SLEEP AND IMMUNE SUPPORT [Suspect]
     Active Substance: DIETARY SUPPLEMENT
     Dosage: UNK UNK, UNK
     Route: 048
     Dates: start: 20170219, end: 20190221

REACTIONS (3)
  - Mental disability [Unknown]
  - Product dose omission issue [Unknown]
  - Somnolence [Unknown]
